FAERS Safety Report 8848930 (Version 1)
Quarter: 2012Q4

REPORT INFORMATION
  Report Type: 
  Country: US (occurrence: US)
  Receive Date: 20121018
  Receipt Date: 20121018
  Transmission Date: 20130627
  Serious: Yes (Hospitalization)
  Sender: FDA-Public Use
  Company Number: US-BAYER-2012-107332

PATIENT
  Age: 44 Year
  Sex: Female
  Weight: 77.55 kg

DRUGS (5)
  1. YASMIN [Suspect]
  2. OCELLA [Suspect]
  3. FISH OIL [Concomitant]
  4. LIDODERM [Concomitant]
     Dosage: UNK
     Dates: start: 20120522
  5. AMOXICILLIN [Concomitant]
     Dosage: UNK
     Dates: start: 20120318

REACTIONS (1)
  - Cerebrovascular accident [Recovering/Resolving]
